FAERS Safety Report 10027491 (Version 3)
Quarter: 2014Q3

REPORT INFORMATION
  Report Type: Spontaneous
  Country: AU (occurrence: None)
  Receive Date: 20140318
  Receipt Date: 20140722
  Transmission Date: 20150326
  Serious: Yes (Life-Threatening, Hospitalization)
  Sender: FDA-Public Use
  Company Number: AUR-APL-2014-02760

PATIENT
  Age: 36 Year
  Sex: Female

DRUGS (4)
  1. AURO-QUETIPAINE 100 (QUETIAPINE) FILM-COATED TABLET, 100MG [Suspect]
     Active Substance: QUETIAPINE
     Indication: PRODUCT USED FOR UNKNOWN INDICATION
     Dosage: 1 D
  2. AURO-ARIPIIPRAZOLE 30 MG (ARIPIPRAZOLE) TABLET, 30MG [Suspect]
     Active Substance: ARIPIPRAZOLE
     Indication: PRODUCT USED FOR UNKNOWN INDICATION
  3. ZOLOFT [Suspect]
     Active Substance: SERTRALINE HYDROCHLORIDE
     Indication: PRODUCT USED FOR UNKNOWN INDICATION
  4. EDRONAX [Suspect]
     Active Substance: REBOXETINE MESYLATE
     Indication: PRODUCT USED FOR UNKNOWN INDICATION

REACTIONS (3)
  - Pre-eclampsia [None]
  - Maternal exposure during pregnancy [None]
  - Postpartum haemorrhage [None]

NARRATIVE: CASE EVENT DATE: 20110731
